FAERS Safety Report 9953635 (Version 1)
Quarter: 2014Q1

REPORT INFORMATION
  Report Type: Spontaneous
  Country: US (occurrence: US)
  Receive Date: 20140304
  Receipt Date: 20140304
  Transmission Date: 20141002
  Serious: No
  Sender: FDA-Public Use
  Company Number: US-AMGEN-USASP2014000561

PATIENT
  Age: 57 Year
  Sex: Male

DRUGS (2)
  1. ENBREL [Suspect]
     Indication: RHEUMATOID ARTHRITIS
     Dosage: UNK UNK, QWK
     Route: 065
     Dates: start: 20130609, end: 20131001
  2. METHOTREXATE [Concomitant]
     Dosage: 0.4 ML INJECTION, QWK
     Dates: start: 201305

REACTIONS (3)
  - Arthralgia [Not Recovered/Not Resolved]
  - Hepatic enzyme abnormal [Recovered/Resolved]
  - Psoriasis [Not Recovered/Not Resolved]
